FAERS Safety Report 5083088-7 (Version None)
Quarter: 2006Q3

REPORT INFORMATION
  Report Type: 
  Country: None (occurrence: None)
  Receive Date: 20060814
  Receipt Date: 20060801
  Transmission Date: 20061208
  Serious: Yes (Death, Life-Threatening)
  Sender: FDA-Public Use
  Company Number: 2006094492

PATIENT
  Age: 58 Year
  Sex: Male
  Weight: 120 kg

DRUGS (4)
  1. SULFASALAZINE [Suspect]
     Indication: MUSCULOSKELETAL PAIN
     Dosage: 2000 MG (500 MG, 4 IN 1 D), ORAL
     Route: 048
     Dates: start: 20050201, end: 20060417
  2. METHOTREXATE [Suspect]
     Indication: MUSCULOSKELETAL PAIN
     Dosage: 15 MG (EVERY WEEK), ORAL
     Route: 048
     Dates: start: 20051001, end: 20060417
  3. REMICADE [Concomitant]
  4. ACECLOFENAC (ACECLOFENAC) [Concomitant]

REACTIONS (2)
  - COMPLETED SUICIDE [None]
  - INJURY ASPHYXIATION [None]
